FAERS Safety Report 14107433 (Version 3)
Quarter: 2025Q3

REPORT INFORMATION
  Report Type: Spontaneous
  Country: EU (occurrence: EU)
  Receive Date: 20171019
  Receipt Date: 20250724
  Transmission Date: 20251020
  Serious: Yes (Death, Life-Threatening, Hospitalization, Other)
  Sender: SANOFI AVENTIS
  Company Number: None

PATIENT
  Age: 65 Year
  Sex: Male

DRUGS (8)
  1. RIFAMPIN [Interacting]
     Active Substance: RIFAMPIN
     Indication: Endocarditis staphylococcal
     Dosage: 600 MG,BID
  2. RIFAMPIN [Interacting]
     Active Substance: RIFAMPIN
     Indication: Staphylococcal infection
  3. CEFAZOLIN [Interacting]
     Active Substance: CEFAZOLIN
     Indication: Endocarditis staphylococcal
     Dosage: 6 G,QD
     Route: 042
  4. CEFAZOLIN [Interacting]
     Active Substance: CEFAZOLIN
     Indication: Staphylococcal infection
  5. GENTAMICIN [Concomitant]
     Active Substance: GENTAMICIN
     Indication: Endocarditis staphylococcal
     Dosage: 500 MG,QD
  6. GENTAMICIN [Concomitant]
     Active Substance: GENTAMICIN
     Indication: Staphylococcal infection
  7. DAPTOMYCIN [Concomitant]
     Active Substance: DAPTOMYCIN
     Indication: Endocarditis staphylococcal
  8. DAPTOMYCIN [Concomitant]
     Active Substance: DAPTOMYCIN
     Indication: Staphylococcal infection

REACTIONS (8)
  - Pericardial haemorrhage [Fatal]
  - Shock [Fatal]
  - Multiple organ dysfunction syndrome [Fatal]
  - Haemorrhage [Fatal]
  - Vitamin K deficiency [Recovered/Resolved]
  - Hypovitaminosis [Recovered/Resolved]
  - Hypoprothrombinaemia [Recovered/Resolved]
  - Drug interaction [Recovered/Resolved]
